FAERS Safety Report 9587270 (Version 1)
Quarter: 2013Q4

REPORT INFORMATION
  Report Type: Spontaneous
  Country: GB (occurrence: GB)
  Receive Date: 20131003
  Receipt Date: 20131003
  Transmission Date: 20140711
  Serious: Yes (Hospitalization)
  Sender: FDA-Public Use
  Company Number: PHHY2013GB107570

PATIENT
  Age: 71 Year
  Sex: Male

DRUGS (3)
  1. ROCURONIUM BROMIDE [Suspect]
     Dosage: 100 MG
  2. THIOPENTAL SODIUM [Concomitant]
  3. FENTANYL [Concomitant]

REACTIONS (2)
  - Recurrence of neuromuscular blockade [Recovered/Resolved]
  - Neuromuscular blockade [Recovered/Resolved]
